FAERS Safety Report 16364946 (Version 1)
Quarter: 2019Q2

REPORT INFORMATION
  Report Type: Other
  Country: QA (occurrence: QA)
  Receive Date: 20190529
  Receipt Date: 20190529
  Transmission Date: 20190711
  Serious: Yes (Hospitalization)
  Sender: FDA-Public Use
  Company Number: QA-FDC LIMITED-2067533

PATIENT
  Age: 29 Year
  Sex: Male

DRUGS (1)
  1. CIPROFLOXACIN. [Suspect]
     Active Substance: CIPROFLOXACIN
     Indication: URINARY TRACT INFECTION
     Route: 048

REACTIONS (3)
  - Haemolytic anaemia [Recovering/Resolving]
  - Methaemoglobinaemia [Recovering/Resolving]
  - Urinary retention [Recovered/Resolved]
